FAERS Safety Report 13895542 (Version 1)
Quarter: 2017Q3

REPORT INFORMATION
  Report Type: Spontaneous
  Country: HU (occurrence: HU)
  Receive Date: 20170819
  Receipt Date: 20170819
  Transmission Date: 20171127
  Serious: No
  Sender: FDA-Public Use
  Company Number: None

PATIENT
  Age: 23 Year
  Sex: Female
  Weight: 60.75 kg

DRUGS (3)
  1. MIRENA [Suspect]
     Active Substance: LEVONORGESTREL
     Indication: CONTRACEPTION
     Dosage: ?          QUANTITY:1 DEVICE;OTHER FREQUENCY:AS INSERTED;OTHER ROUTE:INTRAUTERINE?
     Route: 015
     Dates: start: 20170505
  2. AMPHET SALTS [Concomitant]
  3. ALDACTONE [Concomitant]
     Active Substance: SPIRONOLACTONE

REACTIONS (2)
  - Abdominal pain [None]
  - Lactation disorder [None]

NARRATIVE: CASE EVENT DATE: 20170813
